FAERS Safety Report 15364249 (Version 1)
Quarter: 2018Q3

REPORT INFORMATION
  Report Type: Spontaneous
  Country: US (occurrence: US)
  Receive Date: 20180909
  Receipt Date: 20180909
  Transmission Date: 20181010
  Serious: No
  Sender: FDA-Public Use
  Company Number: US-JNJFOC-20180833844

PATIENT
  Sex: Male
  Weight: 137.44 kg

DRUGS (5)
  1. TREMFYA [Suspect]
     Active Substance: GUSELKUMAB
     Indication: PSORIASIS
     Route: 058
  2. TREMFYA [Suspect]
     Active Substance: GUSELKUMAB
     Indication: ARTHROPATHY
     Route: 058
  3. TREMFYA [Suspect]
     Active Substance: GUSELKUMAB
     Indication: JUVENILE PSORIATIC ARTHRITIS
     Route: 058
  4. DICLOFENAC [Concomitant]
     Active Substance: DICLOFENAC
     Route: 065
  5. TREMFYA [Suspect]
     Active Substance: GUSELKUMAB
     Indication: PSORIASIS
     Route: 058

REACTIONS (1)
  - Psoriasis [Unknown]
